FAERS Safety Report 6104035-2 (Version None)
Quarter: 2009Q1

REPORT INFORMATION
  Report Type: 
  Country: None (occurrence: None)
  Receive Date: 20090302
  Receipt Date: 20090225
  Transmission Date: 20090719
  Serious: Yes (Hospitalization)
  Sender: FDA-Public Use
  Company Number: FR-GUERBET-20090047

PATIENT
  Sex: Male

DRUGS (1)
  1. HEXABRIX [Suspect]
     Indication: SPINAL MYELOGRAM
     Dosage: 10, ML MILLILITRE(S), 1, 1, TOTAL, INTRATHECAL
     Route: 037
     Dates: start: 20090224, end: 20090224

REACTIONS (3)
  - INCORRECT ROUTE OF DRUG ADMINISTRATION [None]
  - MYOCLONUS [None]
  - OFF LABEL USE [None]
